FAERS Safety Report 15327872 (Version 1)
Quarter: 2018Q3

REPORT INFORMATION
  Report Type: Spontaneous
  Country: US (occurrence: US)
  Receive Date: 20180828
  Receipt Date: 20180828
  Transmission Date: 20181010
  Serious: No
  Sender: FDA-Public Use
  Company Number: US-ROCHE-2052489

PATIENT
  Sex: Female
  Weight: 62.2 kg

DRUGS (1)
  1. PEGASYS [Suspect]
     Active Substance: PEGINTERFERON ALFA-2A
     Indication: POLYCYTHAEMIA VERA
     Route: 058
     Dates: start: 201708

REACTIONS (3)
  - Needle issue [Unknown]
  - No adverse event [Unknown]
  - Drug dose omission [Unknown]
